FAERS Safety Report 22679309 (Version 5)
Quarter: 2024Q2

REPORT INFORMATION
  Report Type: Report from Study
  Country: US (occurrence: US)
  Receive Date: 20230707
  Receipt Date: 20240610
  Transmission Date: 20240715
  Serious: No
  Sender: FDA-Public Use
  Company Number: US-ACADIA PHARMACEUTICALS INC.-ACA-2023-TRF-002332

PATIENT
  Age: 9 Year
  Sex: Female

DRUGS (1)
  1. DAYBUE [Suspect]
     Active Substance: TROFINETIDE
     Indication: Rett syndrome
     Dosage: 50 MILLILITER, BID
     Route: 048
     Dates: start: 20230609

REACTIONS (12)
  - Weight decreased [Unknown]
  - Gastroenteritis viral [Not Recovered/Not Resolved]
  - Viral infection [Not Recovered/Not Resolved]
  - Blister [Not Recovered/Not Resolved]
  - Burning sensation [Not Recovered/Not Resolved]
  - Rash erythematous [Not Recovered/Not Resolved]
  - Product dose omission issue [Recovered/Resolved]
  - Viral infection [Not Recovered/Not Resolved]
  - Diarrhoea [Unknown]
  - Diarrhoea [Recovering/Resolving]
  - Vomiting [Not Recovered/Not Resolved]
  - Diarrhoea [Not Recovered/Not Resolved]

NARRATIVE: CASE EVENT DATE: 20230609
